FAERS Safety Report 5787343-4 (Version None)
Quarter: 2008Q2

REPORT INFORMATION
  Report Type: 
  Country: None (occurrence: None)
  Receive Date: 20080623
  Receipt Date: 20080623
  Transmission Date: 20081010
  Serious: Yes (Hospitalization, Other)
  Sender: FDA-Public Use
  Company Number: None

PATIENT
  Sex: Male
  Weight: 76.9 kg

DRUGS (2)
  1. AVELOX [Suspect]
     Indication: HEPATITIS
     Dosage: 400 MG DAILY PO
     Route: 048
     Dates: start: 20080614, end: 20080617
  2. AVELOX [Suspect]
     Indication: RELAPSING FEVER
     Dosage: 400 MG DAILY PO
     Route: 048
     Dates: start: 20080614, end: 20080617

REACTIONS (5)
  - ALANINE AMINOTRANSFERASE INCREASED [None]
  - ASPARTATE AMINOTRANSFERASE INCREASED [None]
  - BLOOD BILIRUBIN INCREASED [None]
  - JAUNDICE [None]
  - OCULAR ICTERUS [None]
